FAERS Safety Report 6975185-3 (Version None)
Quarter: 2010Q3

REPORT INFORMATION
  Report Type: 
  Country: None (occurrence: None)
  Receive Date: 20100910
  Receipt Date: 20090213
  Transmission Date: 20110219
  Serious: No
  Sender: FDA-Public Use
  Company Number: US-WYE-H08193509

PATIENT
  Sex: Male
  Weight: 122.58 kg

DRUGS (2)
  1. PRISTIQ [Suspect]
     Indication: DEPRESSION
     Route: 048
     Dates: start: 20090210
  2. MULTI-VITAMINS [Concomitant]

REACTIONS (1)
  - MIDDLE INSOMNIA [None]
